FAERS Safety Report 8494958-1 (Version None)
Quarter: 2012Q3

REPORT INFORMATION
  Report Type: 
  Country: None (occurrence: None)
  Receive Date: 20120709
  Receipt Date: 20120629
  Transmission Date: 20120928
  Serious: Yes (Hospitalization)
  Sender: FDA-Public Use
  Company Number: FR-BRISTOL-MYERS SQUIBB COMPANY-15395528

PATIENT
  Age: 48 Year
  Sex: Male
  Weight: 63 kg

DRUGS (16)
  1. REYATAZ [Suspect]
     Route: 048
     Dates: start: 20090901, end: 20101004
  2. ZIAGEN [Suspect]
     Route: 048
     Dates: start: 20081201
  3. RAMIPRIL [Suspect]
  4. NORVIR [Suspect]
     Route: 048
     Dates: start: 20090901, end: 20101004
  5. GAVISCON [Concomitant]
  6. PREDNISOLONE [Suspect]
     Route: 048
     Dates: start: 20081101, end: 20101004
  7. EUPRESSYL [Concomitant]
  8. LERCANIDIPINE [Concomitant]
  9. ATENOLOL [Concomitant]
  10. RAMIPRIL [Concomitant]
  11. FERROUS SULFATE TAB [Concomitant]
  12. LASIX [Suspect]
  13. HYPERIUM [Concomitant]
  14. PANTOPRAZOLE SODIUM [Concomitant]
  15. EPIVIR [Suspect]
     Route: 048
     Dates: start: 20081201
  16. CRESTOR [Concomitant]

REACTIONS (2)
  - RENAL TUBULAR DISORDER [None]
  - CRYSTAL URINE [None]
